FAERS Safety Report 12677025 (Version 2)
Quarter: 2016Q4

REPORT INFORMATION
  Report Type: Spontaneous
  Country: US (occurrence: US)
  Receive Date: 20160823
  Receipt Date: 20161003
  Transmission Date: 20170207
  Serious: Yes (Other)
  Sender: FDA-Public Use
  Company Number: US-009507513-1608USA009998

PATIENT
  Age: 32 Year
  Sex: Female

DRUGS (6)
  1. VINCRISTINE SULFATE. [Suspect]
     Active Substance: VINCRISTINE SULFATE
     Indication: B PRECURSOR TYPE ACUTE LEUKAEMIA
     Dosage: UNK, CYCLICAL, HYPERCVAD REGIMEN B
     Dates: start: 201403, end: 2014
  2. CYCLOPHOSPHAMIDE. [Suspect]
     Active Substance: CYCLOPHOSPHAMIDE
     Indication: B PRECURSOR TYPE ACUTE LEUKAEMIA
     Dosage: UNK, CYCLICAL, HYPERCVAD REGIMEN B
     Dates: start: 201403, end: 2014
  3. DOXORUBICIN [Suspect]
     Active Substance: DOXORUBICIN
     Indication: B PRECURSOR TYPE ACUTE LEUKAEMIA
     Dosage: UNK, CYCLICAL, HYPERCVAD REGIMEN B
     Dates: start: 201403, end: 2014
  4. DEXAMETHASONE. [Suspect]
     Active Substance: DEXAMETHASONE
     Indication: B PRECURSOR TYPE ACUTE LEUKAEMIA
     Dosage: UNK, CYCLICAL, HYPERCVAD REGIMEN B
     Dates: start: 201403, end: 2014
  5. CYTARABINE. [Suspect]
     Active Substance: CYTARABINE
     Indication: B PRECURSOR TYPE ACUTE LEUKAEMIA
     Dosage: UNK, CYCLICAL, HYPERCVAD REGIMEN B
     Dates: start: 201403, end: 2014
  6. METHOTREXATE. [Suspect]
     Active Substance: METHOTREXATE
     Indication: B PRECURSOR TYPE ACUTE LEUKAEMIA
     Dosage: TWICE PER CYCLE, HYPERCVAD REGIMEN B
     Route: 037
     Dates: start: 201403, end: 2014

REACTIONS (2)
  - Condition aggravated [Unknown]
  - Cytopenia [Unknown]

NARRATIVE: CASE EVENT DATE: 2014
